FAERS Safety Report 5463190-8 (Version None)
Quarter: 2007Q3

REPORT INFORMATION
  Report Type: 
  Country: None (occurrence: None)
  Receive Date: 20070920
  Receipt Date: 20070917
  Transmission Date: 20080115
  Serious: Yes (Other)
  Sender: FDA-Public Use
  Company Number: A0682455A

PATIENT
  Age: 69 Year
  Sex: Female

DRUGS (4)
  1. ADVAIR DISKUS 100/50 [Suspect]
     Indication: ASTHMA
     Dosage: 1PUFF TWICE PER DAY
     Route: 055
     Dates: start: 20020101
  2. SYNTHROID [Concomitant]
  3. STATINS [Concomitant]
  4. BLOOD PRESSURE MEDICATION [Concomitant]

REACTIONS (2)
  - BLOOD PRESSURE INCREASED [None]
  - CATARACT [None]
